FAERS Safety Report 7359048-X (Version None)
Quarter: 2011Q1

REPORT INFORMATION
  Report Type: 
  Country: None (occurrence: None)
  Receive Date: 20110317
  Receipt Date: 20110315
  Transmission Date: 20110831
  Serious: Yes (Death)
  Sender: FDA-Public Use
  Company Number: US-AMGEN-USASP2011012722

PATIENT
  Age: 70 Year
  Sex: Male
  Weight: 120.64 kg

DRUGS (12)
  1. JANUMET [Concomitant]
  2. SPIRONOLACTONE [Concomitant]
  3. MIRTAZAPINE [Concomitant]
  4. LASIX [Concomitant]
  5. PREVACID [Concomitant]
  6. RIFAXIMIN [Concomitant]
  7. NPLATE [Suspect]
     Indication: THROMBOCYTOPENIA
     Dosage: 7 A?G/KG, QWK
     Dates: start: 20090310, end: 20100506
  8. NPLATE [Suspect]
     Indication: IDIOPATHIC THROMBOCYTOPENIC PURPURA
  9. GLIMEPIRIDE [Concomitant]
  10. ISOSORBIDE DINITRATE [Concomitant]
  11. LACTULOSE [Concomitant]
  12. NADOLOL [Concomitant]

REACTIONS (1)
  - BILE DUCT CANCER [None]
